FAERS Safety Report 15429179 (Version 1)
Quarter: 2018Q3

REPORT INFORMATION
  Report Type: Spontaneous
  Country: US (occurrence: US)
  Receive Date: 20180920
  Receipt Date: 20180920
  Transmission Date: 20181010
  Serious: Yes (Other)
  Sender: FDA-Public Use
  Company Number: None

PATIENT
  Age: 59 Year
  Sex: Female
  Weight: 67.5 kg

DRUGS (3)
  1. METFORMIN 1000 MG BID [Concomitant]
  2. CRESTOR 10 MG OD [Concomitant]
  3. TRULICITY [Suspect]
     Active Substance: DULAGLUTIDE
     Indication: TYPE 2 DIABETES MELLITUS
     Dosage: ?          QUANTITY:1 INJECTION(S);OTHER FREQUENCY:WEEKLY;OTHER ROUTE:INJECTION?
     Dates: start: 20180812, end: 20180917

REACTIONS (3)
  - Vomiting [None]
  - Rash [None]
  - Nausea [None]

NARRATIVE: CASE EVENT DATE: 20180918
